FAERS Safety Report 7985332-2 (Version None)
Quarter: 2011Q4

REPORT INFORMATION
  Report Type: 
  Country: None (occurrence: None)
  Receive Date: 20111216
  Receipt Date: 20110315
  Transmission Date: 20120403
  Serious: No
  Sender: FDA-Public Use
  Company Number: US-ABBOTT-11P-163-0713637-00

PATIENT
  Sex: Male
  Weight: 51.302 kg

DRUGS (3)
  1. ASPIRIN [Concomitant]
     Indication: MULTIPLE SCLEROSIS
  2. GABAPENTIN [Concomitant]
     Indication: MULTIPLE SCLEROSIS
  3. TERAZOSIN HCL [Suspect]
     Indication: PRODUCT USED FOR UNKNOWN INDICATION

REACTIONS (8)
  - DYSURIA [None]
  - WEIGHT DECREASED [None]
  - DRUG INEFFECTIVE [None]
  - MULTIPLE SCLEROSIS [None]
  - PALPITATIONS [None]
  - FEELING ABNORMAL [None]
  - DYSGRAPHIA [None]
  - FUNCTIONAL GASTROINTESTINAL DISORDER [None]
